FAERS Safety Report 4886660-X (Version None)
Quarter: 2006Q1

REPORT INFORMATION
  Report Type: 
  Country: None (occurrence: None)
  Receive Date: 20060120
  Receipt Date: 20051212
  Transmission Date: 20060701
  Serious: Yes (Other)
  Sender: FDA-Public Use
  Company Number: PHEH2005US13503

PATIENT
  Age: 49 Year
  Sex: Female

DRUGS (2)
  1. ZOMETA [Suspect]
     Indication: MULTIPLE MYELOMA
     Dosage: 4 MG, QMO
     Dates: start: 20030909
  2. CHEMOTHERAPEUTICS,OTHER [Concomitant]
     Dosage: HIGH-DOSE
     Dates: start: 20050101

REACTIONS (2)
  - BONE DISORDER [None]
  - OSTEONECROSIS [None]
